FAERS Safety Report 6822425-7 (Version None)
Quarter: 2010Q3

REPORT INFORMATION
  Report Type: 
  Country: None (occurrence: None)
  Receive Date: 20100707
  Receipt Date: 20100707
  Transmission Date: 20110219
  Serious: Yes (Other)
  Sender: FDA-Public Use
  Company Number: None

PATIENT
  Sex: Female

DRUGS (4)
  1. BONIVA [Suspect]
     Dosage: 3MG Q3MONTHS IV BOLUS
     Route: 040
     Dates: start: 20090106, end: 20100611
  2. EPOETIN [Concomitant]
  3. CYANOCOBALAMIN [Concomitant]
  4. CALCITRIOL [Concomitant]

REACTIONS (1)
  - FATIGUE [None]
